FAERS Safety Report 25140472 (Version 1)
Quarter: 2025Q1

REPORT INFORMATION
  Report Type: Spontaneous
  Country: US (occurrence: None)
  Receive Date: 20250328
  Receipt Date: 20250328
  Transmission Date: 20250409
  Serious: Yes (Disabling)
  Sender: FDA-CTU
  Company Number: None

PATIENT

DRUGS (7)
  1. CABERGOLINE [Suspect]
     Active Substance: CABERGOLINE
  2. Bayer low dose 81 mg [Concomitant]
  3. Spring Valley Vit D3 [Concomitant]
  4. HYDROCHLOROTHIAZIDE\LISINOPRIL [Concomitant]
     Active Substance: HYDROCHLOROTHIAZIDE\LISINOPRIL
  5. GABAPENTIN [Concomitant]
     Active Substance: GABAPENTIN
  6. ROSUVASTATIN [Concomitant]
     Active Substance: ROSUVASTATIN
  7. CABERGOLINE [Concomitant]
     Active Substance: CABERGOLINE

REACTIONS (4)
  - Loss of consciousness [None]
  - Eye pain [None]
  - Vision blurred [None]
  - Feeling of despair [None]

NARRATIVE: CASE EVENT DATE: 20250304
